FAERS Safety Report 16314693 (Version 1)
Quarter: 2019Q2

REPORT INFORMATION
  Report Type: Spontaneous
  Country: US (occurrence: US)
  Receive Date: 20190410
  Receipt Date: 20190410
  Transmission Date: 20190711
  Serious: Yes (Hospitalization)
  Sender: FDA-Public Use
  Company Number: None

PATIENT
  Age: 71 Year
  Sex: Female
  Weight: 60.78 kg

DRUGS (9)
  1. TRAMADOL. [Concomitant]
     Active Substance: TRAMADOL
  2. CAPECITABINE 500 MG [Suspect]
     Active Substance: CAPECITABINE
     Indication: NEOPLASM MALIGNANT
     Dates: start: 20190221
  3. ONDANESTRON [Concomitant]
  4. NECON [Concomitant]
     Active Substance: ETHINYL ESTRADIOL\NORETHINDRONE
  5. AMITRIPTYLINE [Concomitant]
     Active Substance: AMITRIPTYLINE
  6. OMEPRAZOLE. [Concomitant]
     Active Substance: OMEPRAZOLE
  7. LORATADINE. [Concomitant]
     Active Substance: LORATADINE
  8. FLONASE [Concomitant]
     Active Substance: FLUTICASONE PROPIONATE
  9. CITALOPRAM [Concomitant]
     Active Substance: CITALOPRAM HYDROBROMIDE

REACTIONS (2)
  - Diarrhoea [None]
  - Dehydration [None]
